FAERS Safety Report 7733690-6 (Version None)
Quarter: 2011Q3

REPORT INFORMATION
  Report Type: 
  Country: None (occurrence: None)
  Receive Date: 20110907
  Receipt Date: 20110901
  Transmission Date: 20111222
  Serious: Yes (Other)
  Sender: FDA-Public Use
  Company Number: US-SANOFI-AVENTIS-2011SA056702

PATIENT
  Age: 77 Year
  Sex: Male

DRUGS (7)
  1. JEVTANA KIT [Suspect]
     Indication: PROSTATE CANCER
     Route: 041
     Dates: start: 20110105, end: 20110105
  2. JEVTANA KIT [Suspect]
     Route: 041
     Dates: start: 20110223, end: 20110223
  3. NEUPOGEN [Concomitant]
     Dates: start: 20110105, end: 20110105
  4. NEUPOGEN [Concomitant]
     Dates: start: 20110126, end: 20110126
  5. HORMONES AND RELATED AGENTS [Concomitant]
  6. NEUPOGEN [Concomitant]
     Dates: start: 20110223, end: 20110223
  7. JEVTANA KIT [Suspect]
     Route: 041
     Dates: start: 20110126, end: 20110126

REACTIONS (3)
  - CONDITION AGGRAVATED [None]
  - NEUTROPENIA [None]
  - DRUG INEFFECTIVE [None]
